FAERS Safety Report 22871451 (Version 2)
Quarter: 2023Q4

REPORT INFORMATION
  Report Type: Spontaneous
  Country: US (occurrence: US)
  Receive Date: 20230828
  Receipt Date: 20231130
  Transmission Date: 20240110
  Serious: Yes (Other)
  Sender: FDA-Public Use
  Company Number: US-APELLIS PHARMACEUTICALS-APL-2023-002674

PATIENT
  Age: 75 Year
  Sex: Female

DRUGS (2)
  1. SYFOVRE [Suspect]
     Active Substance: PEGCETACOPLAN
     Indication: Dry age-related macular degeneration
     Dosage: UNK, SINGLE OD
     Dates: start: 20230621, end: 20230621
  2. SYFOVRE [Suspect]
     Active Substance: PEGCETACOPLAN
     Dosage: UNK, SINGLE OS
     Dates: start: 20230621, end: 20230621

REACTIONS (9)
  - Vitritis [Recovered/Resolved]
  - Vitritis [Recovered/Resolved]
  - Anterior chamber cell [Recovered/Resolved]
  - Anterior chamber cell [Recovered/Resolved]
  - Visual impairment [Unknown]
  - Visual impairment [Unknown]
  - Eye pain [Recovered/Resolved]
  - Eye pain [Recovered/Resolved]
  - Wrong technique in product usage process [Unknown]

NARRATIVE: CASE EVENT DATE: 20230622
